FAERS Safety Report 16308057 (Version 9)
Quarter: 2020Q1

REPORT INFORMATION
  Report Type: Report from Study
  Country: CA (occurrence: CA)
  Receive Date: 20190514
  Receipt Date: 20200326
  Transmission Date: 20200409
  Serious: Yes (Other)
  Sender: FDA-Public Use
  Company Number: CA-SA-2018SA140425

PATIENT
  Age: 45 Year
  Sex: Female

DRUGS (6)
  1. METHYLPREDNISOLONE. [Concomitant]
     Active Substance: METHYLPREDNISOLONE
     Indication: PREMEDICATION
     Dosage: 1 G, UNK
     Route: 042
     Dates: start: 20180514, end: 20180516
  2. RANITIDINE. [Concomitant]
     Active Substance: RANITIDINE
     Indication: PREMEDICATION
     Dosage: 150 MG, UNK
     Route: 048
     Dates: start: 20180514, end: 20180516
  3. ACICLOVIR [Concomitant]
     Active Substance: ACYCLOVIR
     Indication: PREMEDICATION
     Dosage: 200 MG, BID
     Route: 048
     Dates: start: 20180514
  4. ALEMTUZUMAB [Suspect]
     Active Substance: ALEMTUZUMAB
     Indication: RELAPSING-REMITTING MULTIPLE SCLEROSIS
     Dosage: 12 MG, QD
     Route: 041
     Dates: start: 20180514, end: 20180516
  5. REACTINE [CETIRIZINE HYDROCHLORIDE] [Concomitant]
     Active Substance: CETIRIZINE HYDROCHLORIDE
     Indication: PREMEDICATION
     Dosage: 10 MG, UNK
     Route: 048
     Dates: start: 20180514, end: 20180516
  6. TYLENOL [Concomitant]
     Active Substance: ACETAMINOPHEN
     Indication: PREMEDICATION
     Dosage: 975 MG, UNK
     Route: 048
     Dates: start: 20180514, end: 20180516

REACTIONS (33)
  - Nitrite urine present [Recovered/Resolved]
  - White blood cells urine positive [Not Recovered/Not Resolved]
  - Gastroenteritis viral [Recovered/Resolved]
  - Red blood cells urine positive [Not Recovered/Not Resolved]
  - Fatigue [Recovered/Resolved]
  - Ligament sprain [Recovered/Resolved]
  - Condition aggravated [Recovering/Resolving]
  - Arthralgia [Not Recovered/Not Resolved]
  - Urinary casts [Unknown]
  - Protein urine present [Recovered/Resolved]
  - Blood urine present [Recovered/Resolved]
  - Staphylococcal infection [Unknown]
  - Multiple sclerosis [Not Recovered/Not Resolved]
  - Urinary tract infection [Recovered/Resolved]
  - Joint swelling [Not Recovered/Not Resolved]
  - Menorrhagia [Recovering/Resolving]
  - Arthralgia [Not Recovered/Not Resolved]
  - Glucose urine [Recovered/Resolved]
  - Menorrhagia [Unknown]
  - Culture urine positive [Unknown]
  - Urinary sediment present [Not Recovered/Not Resolved]
  - Blood thyroid stimulating hormone decreased [Recovered/Resolved]
  - Lymphocyte count decreased [Not Recovered/Not Resolved]
  - Dysmenorrhoea [Recovering/Resolving]
  - Mobility decreased [Not Recovered/Not Resolved]
  - Neutrophil count increased [Unknown]
  - Monocyte count increased [Recovered/Resolved]
  - Bacterial test positive [Not Recovered/Not Resolved]
  - Hypotension [Recovered/Resolved]
  - White blood cell count decreased [Recovered/Resolved]
  - Pain [Not Recovered/Not Resolved]
  - Urine leukocyte esterase positive [Recovered/Resolved]
  - Oedema peripheral [Not Recovered/Not Resolved]

NARRATIVE: CASE EVENT DATE: 201805
